FAERS Safety Report 19127589 (Version 1)
Quarter: 2021Q2

REPORT INFORMATION
  Report Type: Spontaneous
  Country: US (occurrence: US)
  Receive Date: 20210413
  Receipt Date: 20210413
  Transmission Date: 20210717
  Serious: No
  Sender: FDA-Public Use
  Company Number: US-ALLERGAN-2026987US

PATIENT
  Sex: Female

DRUGS (1)
  1. LATISSE [Suspect]
     Active Substance: BIMATOPROST
     Indication: GROWTH OF EYELASHES
     Dosage: 2 GTT, QOD
     Route: 061
     Dates: end: 202007

REACTIONS (13)
  - Eye swelling [Recovered/Resolved]
  - Eyelid exfoliation [Recovered/Resolved]
  - Dark circles under eyes [Recovered/Resolved]
  - Eyelid irritation [Recovered/Resolved]
  - Ocular hyperaemia [Recovered/Resolved]
  - Dry eye [Recovered/Resolved]
  - Eyelid skin dryness [Recovered/Resolved]
  - Eyelid pain [Recovered/Resolved]
  - Dry skin [Recovered/Resolved]
  - Inappropriate schedule of product administration [Unknown]
  - Erythema [Recovered/Resolved]
  - Eye irritation [Recovered/Resolved]
  - Blepharal pigmentation [Unknown]
